FAERS Safety Report 17741270 (Version 2)
Quarter: 2020Q3

REPORT INFORMATION
  Report Type: Report from Study
  Country: US (occurrence: US)
  Receive Date: 20200504
  Receipt Date: 20200714
  Transmission Date: 20201102
  Serious: Yes (Hospitalization)
  Sender: FDA-Public Use
  Company Number: NVSC2020US118185

PATIENT
  Age: 11 Year
  Sex: Male
  Weight: 55.6 kg

DRUGS (4)
  1. AFINITOR [Suspect]
     Active Substance: EVEROLIMUS
     Dosage: 2.5 MG, QD
     Route: 048
     Dates: start: 202001, end: 20200408
  2. OXTELLAR XR [Concomitant]
     Active Substance: OXCARBAZEPINE
     Indication: SEIZURE
     Dosage: QD
     Route: 048
     Dates: start: 20180409
  3. SABRIL [Concomitant]
     Active Substance: VIGABATRIN
     Indication: SEIZURE
     Dosage: BID
     Route: 048
     Dates: start: 20180205
  4. AFINITOR [Suspect]
     Active Substance: EVEROLIMUS
     Indication: ASTROCYTOMA, LOW GRADE
     Dosage: 2.5 MG, QD
     Route: 048
     Dates: start: 20200108, end: 20200131

REACTIONS (11)
  - Blood pressure increased [Unknown]
  - Creatinine urine increased [Unknown]
  - Oedema [Not Recovered/Not Resolved]
  - Lethargy [Unknown]
  - Blood triglycerides increased [Unknown]
  - Blood cholesterol increased [Unknown]
  - Renal failure [Not Recovered/Not Resolved]
  - Nephrotic syndrome [Not Recovered/Not Resolved]
  - Protein total increased [Unknown]
  - Urine protein/creatinine ratio increased [Unknown]
  - Swelling [Not Recovered/Not Resolved]

NARRATIVE: CASE EVENT DATE: 20200401
